FAERS Safety Report 10423735 (Version 2)
Quarter: 2014Q3

REPORT INFORMATION
  Report Type: Spontaneous
  Country: GB (occurrence: GB)
  Receive Date: 20140902
  Receipt Date: 20140922
  Transmission Date: 20150326
  Serious: Yes (Disabling)
  Sender: FDA-Public Use
  Company Number: GB-PFIZER INC-2014241943

PATIENT
  Age: 37 Year
  Sex: Female

DRUGS (1)
  1. METHYLPREDNISOLONE [Suspect]
     Active Substance: METHYLPREDNISOLONE
     Indication: RASH
     Dosage: UNK
     Route: 030
     Dates: start: 20140721

REACTIONS (6)
  - Dysphonia [Not Recovered/Not Resolved]
  - Condition aggravated [Unknown]
  - Rash [Not Recovered/Not Resolved]
  - Adductor vocal cord weakness [Not Recovered/Not Resolved]
  - Urticaria cholinergic [Not Recovered/Not Resolved]
  - Dyspnoea [Not Recovered/Not Resolved]

NARRATIVE: CASE EVENT DATE: 20140721
